FAERS Safety Report 6763635-7 (Version None)
Quarter: 2010Q2

REPORT INFORMATION
  Report Type: 
  Country: None (occurrence: None)
  Receive Date: 20100610
  Receipt Date: 20100607
  Transmission Date: 20101027
  Serious: Yes (Hospitalization)
  Sender: FDA-Public Use
  Company Number: US-RB-008142-10

PATIENT
  Age: 55 Year
  Sex: Male

DRUGS (1)
  1. SUBOXONE [Suspect]
     Indication: DRUG USE FOR UNKNOWN INDICATION
     Dosage: DOSING DETAILS UNKNOWN
     Route: 065

REACTIONS (6)
  - ANAEMIA [None]
  - DRUG WITHDRAWAL SYNDROME [None]
  - GRAFT HAEMORRHAGE [None]
  - SKIN GRAFT [None]
  - THYROID DISORDER [None]
  - TOOTH FRACTURE [None]
